FAERS Safety Report 21604558 (Version 1)
Quarter: 2022Q4

REPORT INFORMATION
  Report Type: Spontaneous
  Country: CA (occurrence: CA)
  Receive Date: 20221116
  Receipt Date: 20221116
  Transmission Date: 20230113
  Serious: Yes (Death, Other)
  Sender: FDA-Public Use
  Company Number: CA-009507513-2211CAN004621

PATIENT
  Sex: Male

DRUGS (3)
  1. KEYTRUDA [Suspect]
     Active Substance: PEMBROLIZUMAB
     Indication: Lung carcinoma cell type unspecified stage IV
     Dosage: UNK
     Dates: start: 202101
  2. CARBOPLATIN [Concomitant]
     Active Substance: CARBOPLATIN
  3. ABRAXANE [Concomitant]
     Active Substance: PACLITAXEL

REACTIONS (2)
  - Malignant neoplasm progression [Fatal]
  - Rash [Unknown]

NARRATIVE: CASE EVENT DATE: 20210101
